FAERS Safety Report 10868876 (Version 2)
Quarter: 2015Q1

REPORT INFORMATION
  Report Type: Spontaneous
  Country: TR (occurrence: TR)
  Receive Date: 20150225
  Receipt Date: 20150304
  Transmission Date: 20150721
  Serious: Yes (Hospitalization)
  Sender: FDA-Public Use
  Company Number: PHHY2015TR022025

PATIENT
  Age: 29 Year
  Sex: Female

DRUGS (6)
  1. CLOZAPINE. [Suspect]
     Active Substance: CLOZAPINE
     Dosage: 100 MG, QD
     Route: 065
  2. BIPERIDENE [Suspect]
     Active Substance: BIPERIDEN
     Indication: SCHIZOPHRENIA
     Dosage: 4 MG, QD
     Route: 065
  3. CLOZAPINE. [Suspect]
     Active Substance: CLOZAPINE
     Indication: SCHIZOPHRENIA
     Dosage: 300 MG, QD
     Route: 065
  4. CLOZAPINE. [Suspect]
     Active Substance: CLOZAPINE
     Dosage: 200 MG, QD
     Route: 065
  5. AMISULPRIDE [Suspect]
     Active Substance: AMISULPRIDE
     Indication: SCHIZOPHRENIA
     Dosage: 800 MG, QD
     Route: 065
  6. QUETIAPINE [Suspect]
     Active Substance: QUETIAPINE
     Indication: SCHIZOPHRENIA
     Dosage: 600 MG, QD
     Route: 065

REACTIONS (10)
  - Hyperprolactinaemia [Recovered/Resolved]
  - Hallucination [Unknown]
  - Speech disorder [Unknown]
  - Negativism [Unknown]
  - Abnormal behaviour [Unknown]
  - Galactorrhoea [Recovered/Resolved]
  - Delusion [Unknown]
  - Menstrual disorder [Unknown]
  - Anaemia [Unknown]
  - Condition aggravated [Unknown]
